FAERS Safety Report 7927257-4 (Version None)
Quarter: 2011Q4

REPORT INFORMATION
  Report Type: 
  Country: None (occurrence: None)
  Receive Date: 20111117
  Receipt Date: 20111117
  Transmission Date: 20120403
  Serious: No
  Sender: FDA-Public Use
  Company Number: None

PATIENT
  Age: 54 Year
  Sex: Male
  Weight: 90.9 kg

DRUGS (1)
  1. CLONAZEPAM [Suspect]
     Indication: ANXIETY
     Dosage: 1 MG OTHER PO
     Route: 048
     Dates: start: 20081125, end: 20111113

REACTIONS (3)
  - SEDATION [None]
  - OVERDOSE [None]
  - SUICIDE ATTEMPT [None]
